FAERS Safety Report 7234925 (Version 4)
Quarter: 2013Q1

REPORT INFORMATION
  Report Type: Report from Study
  Country: US (occurrence: US)
  Receive Date: 20091231
  Receipt Date: 20130118
  Transmission Date: 20140127
  Serious: Yes (Other)
  Sender: FDA-Public Use
  Company Number: US-ROCHE-676546

PATIENT
  Sex: Female
  Weight: 77.1 kg

DRUGS (3)
  1. XELODA [Suspect]
     Indication: BREAST CANCER
     Dosage: FREQUENCY: X 14
     Route: 048
     Dates: start: 20091014, end: 20091111
  2. ZOMETA [Concomitant]
     Route: 042
  3. AVASTIN [Concomitant]
     Indication: BREAST CANCER METASTATIC
     Route: 042

REACTIONS (1)
  - Neoplasm malignant [Unknown]
